FAERS Safety Report 8434137-7 (Version None)
Quarter: 2012Q2

REPORT INFORMATION
  Report Type: 
  Country: None (occurrence: None)
  Receive Date: 20120613
  Receipt Date: 20120605
  Transmission Date: 20120825
  Serious: Yes (Hospitalization, Other)
  Sender: FDA-Public Use
  Company Number: US-ACTELION-A-US2012-65803

PATIENT

DRUGS (4)
  1. SILDENAFIL [Concomitant]
  2. COUMADIN [Concomitant]
  3. CALCIUM CHANNEL BLOCKERS [Concomitant]
  4. TRACLEER [Suspect]
     Indication: PULMONARY ARTERIAL HYPERTENSION
     Dosage: UNK
     Route: 048
     Dates: start: 20111001

REACTIONS (5)
  - PULMONARY ARTERIAL HYPERTENSION [None]
  - COUGH [None]
  - OEDEMA PERIPHERAL [None]
  - PULMONARY CONGESTION [None]
  - ARRHYTHMIA [None]
